FAERS Safety Report 10225047 (Version 1)
Quarter: 2014Q2

REPORT INFORMATION
  Report Type: Spontaneous
  Country: US (occurrence: US)
  Receive Date: 20140609
  Receipt Date: 20140609
  Transmission Date: 20141212
  Serious: No
  Sender: FDA-Public Use
  Company Number: US-B.I. PHARMACEUTICALS,INC./RIDGEFIELD-2014-BI-24050BP

PATIENT
  Age: 77 Year
  Sex: Male
  Weight: 91 kg

DRUGS (2)
  1. SPIRIVA [Suspect]
     Indication: CHRONIC OBSTRUCTIVE PULMONARY DISEASE
     Dosage: 18 MCG
     Route: 055
     Dates: start: 20140319
  2. DOXYCYCLINE HYCLATE [Concomitant]
     Indication: CATARACT
     Dosage: 50 MG
     Route: 048

REACTIONS (1)
  - Alopecia [Not Recovered/Not Resolved]
